FAERS Safety Report 7899765-6 (Version None)
Quarter: 2011Q4

REPORT INFORMATION
  Report Type: 
  Country: None (occurrence: None)
  Receive Date: 20111107
  Receipt Date: 20110919
  Transmission Date: 20120403
  Serious: No
  Sender: FDA-Public Use
  Company Number: US-AMGEN-USASP2011048406

PATIENT
  Age: 60 Year
  Sex: Female
  Weight: 74.376 kg

DRUGS (5)
  1. MULTIVITAMIN                       /00097801/ [Concomitant]
  2. PREDNISONE [Concomitant]
     Dosage: 1 MG, UNK
  3. VITAMIN D [Concomitant]
  4. ENBREL [Suspect]
     Indication: PRODUCT USED FOR UNKNOWN INDICATION
     Dosage: 50 MG, QWK
  5. LISINOPRIL [Concomitant]
     Dosage: 2.5 MG, UNK

REACTIONS (5)
  - VOMITING [None]
  - INJECTION SITE PAIN [None]
  - INJECTION SITE SWELLING [None]
  - INJECTION SITE ERYTHEMA [None]
  - INJECTION SITE PRURITUS [None]
